FAERS Safety Report 8365504-8 (Version None)
Quarter: 2012Q2

REPORT INFORMATION
  Report Type: 
  Country: None (occurrence: None)
  Receive Date: 20120516
  Receipt Date: 20120507
  Transmission Date: 20120825
  Serious: Yes (Hospitalization)
  Sender: FDA-Public Use
  Company Number: US-BAXTER-2010BH027530

PATIENT
  Sex: Male
  Weight: 107 kg

DRUGS (22)
  1. ACETYLCYSTEINE [Concomitant]
     Route: 048
     Dates: start: 20080401
  2. ARICEPT [Concomitant]
     Route: 048
     Dates: start: 20081001
  3. PANTOPRAZOLE [Concomitant]
     Route: 048
     Dates: start: 20010101
  4. MULTI-VITAMINS [Concomitant]
     Route: 048
     Dates: start: 20000101
  5. GAMMAGARD LIQUID [Suspect]
     Route: 042
     Dates: start: 20101012, end: 20101012
  6. FLUTICASONE PROPIONATE [Concomitant]
     Dates: start: 20100601, end: 20100910
  7. ZETIA [Concomitant]
     Dates: start: 20101108
  8. SYNTHROID [Concomitant]
     Route: 048
     Dates: start: 20100212
  9. MIRTAZAPINE [Concomitant]
     Dates: start: 20110902
  10. NAMENDA [Concomitant]
     Route: 048
     Dates: start: 20080401
  11. FOLIC ACID W/VITAMIN B12 [Concomitant]
     Route: 048
     Dates: start: 20060401
  12. GAMMAGARD LIQUID [Suspect]
     Route: 042
     Dates: start: 20100719
  13. PROTONIX [Concomitant]
  14. GAMMAGARD LIQUID [Suspect]
     Route: 042
     Dates: start: 20101026, end: 20101026
  15. CELEXA [Concomitant]
     Route: 048
     Dates: start: 20090201
  16. ASCORBIC ACID [Concomitant]
     Route: 048
     Dates: start: 20000101
  17. INFLUENZA VACCINE [Concomitant]
     Dates: start: 20101110, end: 20101110
  18. NIASPAN [Concomitant]
     Dates: start: 20110114, end: 20110214
  19. NIASPAN [Concomitant]
     Dates: start: 20110601
  20. LEVOTHYROXINE SODIUM [Concomitant]
     Dates: start: 20111020
  21. CLARITIN [Concomitant]
     Route: 048
     Dates: start: 20100901
  22. LIPITOR [Concomitant]
     Route: 048
     Dates: start: 20091221, end: 20100910

REACTIONS (1)
  - DEEP VEIN THROMBOSIS [None]
